FAERS Safety Report 5290239-8 (Version None)
Quarter: 2007Q2

REPORT INFORMATION
  Report Type: 
  Country: None (occurrence: None)
  Receive Date: 20070402
  Receipt Date: 20070321
  Transmission Date: 20071010
  Serious: Yes (Hospitalization)
  Sender: FDA-Public Use
  Company Number: A-US2007-14650

PATIENT
  Age: 84 Year
  Sex: Female

DRUGS (15)
  1. TRACLEER [Suspect]
     Indication: PULMONARY HYPERTENSION
     Dosage: SEE IMAGE
     Route: 048
     Dates: start: 20040416, end: 20050801
  2. TRACLEER [Suspect]
     Indication: PULMONARY HYPERTENSION
     Dosage: SEE IMAGE
     Route: 048
     Dates: start: 20050801
  3. FUROSEMIDE [Concomitant]
  4. POTASSIUM ACETATE [Concomitant]
  5. CANDESARTAN CILEXETIL [Concomitant]
  6. ATORVASTATIN CALCIUM [Concomitant]
  7. ISOSORBIDE MONONITRATE [Concomitant]
  8. WARFARIN SODIUM [Concomitant]
  9. GUANFACINE HYDROCHLORIDE [Concomitant]
  10. OMEPRAZOLE [Concomitant]
  11. IRON [Concomitant]
  12. IPRATROPIUM BROMIDE [Concomitant]
  13. DARVOCET (PARACETAMOL, DEXTROPROPOXYPHENE NAPSILATE) [Concomitant]
  14. NITROGLYCERIN [Concomitant]
  15. ZOLPIDEM TARTRATE [Concomitant]

REACTIONS (1)
  - PNEUMONIA [None]
